FAERS Safety Report 7367380-9 (Version None)
Quarter: 2011Q1

REPORT INFORMATION
  Report Type: 
  Country: None (occurrence: None)
  Receive Date: 20110322
  Receipt Date: 20110310
  Transmission Date: 20110831
  Serious: Yes (Hospitalization)
  Sender: FDA-Public Use
  Company Number: CL-BRISTOL-MYERS SQUIBB COMPANY-15462955

PATIENT
  Age: 53 Year
  Sex: Male

DRUGS (3)
  1. HYDROCHLOROTHIAZIDE [Concomitant]
     Indication: HYPERTENSION
     Route: 048
     Dates: start: 20100923
  2. NIFEDIPINE [Concomitant]
     Indication: HYPERTENSION
     Route: 048
     Dates: start: 20100923
  3. ABILIFY [Suspect]
     Indication: SCHIZOPHRENIA
     Dosage: 19DEC10-28DEC10(20MG) 29DEC10-03JAN11(15MG;6D) 20MG:04JAN11-ONG INJECTION
     Route: 048
     Dates: start: 20101219

REACTIONS (1)
  - SCHIZOPHRENIA [None]
